FAERS Safety Report 9799048 (Version 1)
Quarter: 2014Q1

REPORT INFORMATION
  Report Type: Spontaneous
  Country: US (occurrence: None)
  Receive Date: 20140102
  Receipt Date: 20140102
  Transmission Date: 20141002
  Serious: Yes (Hospitalization)
  Sender: FDA-Public Use
  Company Number: SYM-2013-14378

PATIENT
  Age: 64 Year
  Sex: Female

DRUGS (15)
  1. TILDIEM [Suspect]
     Indication: ARTERIOGRAM
     Dates: start: 20130930, end: 20130930
  2. HEPARIN SODIUM (HEPARIN SODIUM) (HEPARIN SODIUM) [Suspect]
     Indication: ARTERIOGRAM CORONARY
     Dates: start: 20130930, end: 20130930
  3. EMLAPATCH [Suspect]
     Indication: PRODUCT USED FOR UNKNOWN INDICATION
     Route: 062
     Dates: start: 20130930, end: 20130930
  4. VISIPAQUE (IODIXANOL) [Concomitant]
  5. RILMENIDINE [Concomitant]
  6. LASILIX FAIBLE (FUROSEMIDE) [Concomitant]
  7. KARDEGIC (ACETYLSALICYLATE LYSINE) [Concomitant]
  8. NATISPRAY (GLYCERYL TRINITRATE) [Concomitant]
  9. EFFERALGAN (PARACETAMOL) [Concomitant]
  10. BETADINE (POVIDONE-IODINE) [Concomitant]
  11. PLAVIX (CLOPIDOGREL BISULFATE) [Concomitant]
  12. ALPRAZOLAM [Concomitant]
  13. NITROUS OXIDE/OXYGEN (ENTONOX) (OXYGEN, NITROUS OXIDE) [Concomitant]
  14. RISORDAN (ISOSORBIDE DINITRATE) [Concomitant]
  15. SODIUM CHLORIDE [Concomitant]

REACTIONS (3)
  - Injection site reaction [None]
  - Erythema [None]
  - Blister [None]
